FAERS Safety Report 19604510 (Version 4)
Quarter: 2021Q3

REPORT INFORMATION
  Report Type: Spontaneous
  Country: US (occurrence: US)
  Receive Date: 20210723
  Receipt Date: 20210730
  Transmission Date: 20211014
  Serious: Yes (Life-Threatening, Hospitalization)
  Sender: FDA-Public Use
  Company Number: US-ROCHE-2874132

PATIENT
  Age: 80 Year
  Sex: Female

DRUGS (7)
  1. ACTIVASE [Suspect]
     Active Substance: ALTEPLASE
     Indication: APHASIA
     Dosage: ONE TIME 0.9 MG/KG BOLUS
     Route: 040
     Dates: start: 20210718, end: 20210718
  2. ACTIVASE [Suspect]
     Active Substance: ALTEPLASE
  3. ACTIVASE [Suspect]
     Active Substance: ALTEPLASE
     Dosage: VIAL
     Route: 042
  4. ACTIVASE [Suspect]
     Active Substance: ALTEPLASE
  5. LISINOPRIL. [Suspect]
     Active Substance: LISINOPRIL
     Indication: PRODUCT USED FOR UNKNOWN INDICATION
     Route: 048
  6. ACTIVASE [Suspect]
     Active Substance: ALTEPLASE
     Indication: CEREBROVASCULAR ACCIDENT
     Dosage: ONE TIME 0.8 MG/KG INFUSION
     Route: 042
     Dates: start: 20210718, end: 20210718
  7. ACTIVASE [Suspect]
     Active Substance: ALTEPLASE

REACTIONS (5)
  - Angioedema [Not Recovered/Not Resolved]
  - Angioedema [Unknown]
  - Lip oedema [Recovered/Resolved]
  - Hypotension [Unknown]
  - Flushing [Recovered/Resolved]

NARRATIVE: CASE EVENT DATE: 20210718
